FAERS Safety Report 11622348 (Version 1)
Quarter: 2015Q4

REPORT INFORMATION
  Report Type: Spontaneous
  Country: US (occurrence: US)
  Receive Date: 20151013
  Receipt Date: 20151013
  Transmission Date: 20160304
  Serious: No
  Sender: FDA-Public Use
  Company Number: US-JNJFOC-20150405496

PATIENT
  Age: 24 Month
  Sex: Female

DRUGS (1)
  1. CHILDRENS TYLENOL [Suspect]
     Active Substance: ACETAMINOPHEN
     Indication: PYREXIA
     Dosage: ONE DOSE AT 10:30 AM AND THE SECOND DOSE AT 1:30 PM
     Route: 048
     Dates: start: 20150406

REACTIONS (1)
  - Inappropriate schedule of drug administration [Unknown]
